FAERS Safety Report 4620328-X (Version None)
Quarter: 2005Q1

REPORT INFORMATION
  Report Type: 
  Country: None (occurrence: None)
  Receive Date: 20050324
  Receipt Date: 20050316
  Transmission Date: 20050727
  Serious: Yes (Death, Hospitalization)
  Sender: FDA-Public Use
  Company Number: 163-20785-04100275

PATIENT
  Age: 73 Year
  Sex: Male

DRUGS (3)
  1. THALOMID [Suspect]
     Indication: CHRONIC MYELOMONOCYTIC LEUKAEMIA
     Dosage: 50 MG, QD, ORAL
     Route: 048
     Dates: start: 20040707, end: 20040901
  2. TRISENOX [Suspect]
     Indication: CHRONIC MYELOMONOCYTIC LEUKAEMIA
     Dosage: MON-FRI X 2WKS, 2WKS REST, 2WKS ON, INTRAVENOUS
     Route: 042
     Dates: start: 20040707, end: 20040901
  3. ANALGESIC (ANALGESICS) [Concomitant]

REACTIONS (5)
  - ACUTE MYELOID LEUKAEMIA [None]
  - CHRONIC MYELOMONOCYTIC LEUKAEMIA [None]
  - DISEASE PROGRESSION [None]
  - FALL [None]
  - HEAD INJURY [None]
